FAERS Safety Report 20024048 (Version 1)
Quarter: 2021Q4

REPORT INFORMATION
  Report Type: Spontaneous
  Country: DE (occurrence: DE)
  Receive Date: 20211102
  Receipt Date: 20211102
  Transmission Date: 20220303
  Serious: Yes (Hospitalization, Other)
  Sender: FDA-Public Use
  Company Number: DE-ADRED-06954-01

PATIENT
  Age: 86 Year
  Sex: Male
  Weight: 60 kg

DRUGS (9)
  1. CLOPIDOGREL [Suspect]
     Active Substance: CLOPIDOGREL BISULFATE
     Indication: Product used for unknown indication
     Dosage: 75 MILLIGRAM, QD (75 MG, 1-0-0-0)
  2. NALOXONE HYDROCHLORIDE\TILIDINE HYDROCHLORIDE [Concomitant]
     Active Substance: NALOXONE HYDROCHLORIDE\TILIDINE HYDROCHLORIDE
     Dosage: 1 DOSAGE FORM, QD (4/50 MG, 1-0-0-0)
  3. EZETIMIBE\SIMVASTATIN [Concomitant]
     Active Substance: EZETIMIBE\SIMVASTATIN
     Dosage: 1 DOSAGE FORM, QD (10/40 MG, 0-0-1-0)
  4. METFORMIN [Concomitant]
     Active Substance: METFORMIN HYDROCHLORIDE
     Dosage: 1000 MILLIGRAM, QD (1000 MG, 1-0-0-0)
  5. BISOPROLOL [Concomitant]
     Active Substance: BISOPROLOL
     Dosage: 2.5 MILLIGRAM, QD (2.5 MG, 1-0-0-0)
  6. TAMSULOSIN [Concomitant]
     Active Substance: TAMSULOSIN
     Dosage: UNK (0.4 MG, 0-0-1-0)
  7. PANTOPRAZOL                        /01263201/ [Concomitant]
     Dosage: 40 MILLIGRAM (40 MG, 0-0-0-1)
  8. CANDESARTAN [Concomitant]
     Active Substance: CANDESARTAN
     Dosage: 8 MILLIGRAM (8 MG, 1-0-1-0)
  9. MIRTAZAPINE [Concomitant]
     Active Substance: MIRTAZAPINE
     Dosage: 15 MILLIGRAM (15 MG, 0-0-0-1.5)

REACTIONS (4)
  - Urogenital haemorrhage [Unknown]
  - Dysuria [Unknown]
  - Haematuria [Unknown]
  - Anaemia [Unknown]
